FAERS Safety Report 4349100-5 (Version None)
Quarter: 2004Q2

REPORT INFORMATION
  Report Type: 
  Country: None (occurrence: None)
  Receive Date: 20040428
  Receipt Date: 20040420
  Transmission Date: 20050107
  Serious: Yes (Death, Other)
  Sender: FDA-Public Use
  Company Number: AT-BRISTOL-MYERS SQUIBB COMPANY-12564894

PATIENT

DRUGS (4)
  1. VP-16 [Suspect]
     Indication: ACUTE MYELOID LEUKAEMIA
     Dosage: FOR 5 DAYS
  2. CLADRIBINE [Suspect]
     Indication: ACUTE MYELOID LEUKAEMIA
     Dosage: 2 HR INFUSION
  3. ARA-C [Suspect]
     Indication: ACUTE MYELOID LEUKAEMIA
     Dosage: FOR 5 DAYS
  4. DAUNOXOME [Suspect]
     Indication: ACUTE MYELOID LEUKAEMIA
     Dosage: ON DAYS 1,3,5

REACTIONS (5)
  - APLASIA [None]
  - LUNG INFECTION [None]
  - PYREXIA [None]
  - SEPSIS [None]
  - TUMOUR LYSIS SYNDROME [None]
